FAERS Safety Report 5463042-3 (Version None)
Quarter: 2007Q3

REPORT INFORMATION
  Report Type: 
  Country: None (occurrence: None)
  Receive Date: 20070920
  Receipt Date: 20070914
  Transmission Date: 20080115
  Serious: Yes (Other)
  Sender: FDA-Public Use
  Company Number: PHEH2007US11560

PATIENT
  Age: 51 Year
  Sex: Female
  Weight: 124.26 kg

DRUGS (6)
  1. TEKTURNA [Suspect]
     Indication: HYPERTENSION
     Dosage: 150 MG, QD
     Route: 048
     Dates: end: 20070617
  2. TEKTURNA [Suspect]
     Dosage: 300 MG, QD
     Route: 048
     Dates: start: 20070618, end: 20070815
  3. GLUCOPHAGE [Concomitant]
     Dosage: 500 MG, BID
     Route: 048
  4. HYZAAR [Concomitant]
     Dosage: 100/25 MG, QD
     Route: 048
  5. CADUET [Concomitant]
     Dosage: 10/20 MG, QD
     Route: 048
  6. COREG [Concomitant]
     Dosage: 80 MG, QD
     Route: 048

REACTIONS (2)
  - BLOOD CREATININE INCREASED [None]
  - RENAL FAILURE ACUTE [None]
